FAERS Safety Report 6803457-1 (Version None)
Quarter: 2010Q2

REPORT INFORMATION
  Report Type: 
  Country: None (occurrence: None)
  Receive Date: 20100628
  Receipt Date: 20100621
  Transmission Date: 20101027
  Serious: Yes (Hospitalization, Other)
  Sender: FDA-Public Use
  Company Number: JP-ROCHE-711199

PATIENT
  Sex: Female

DRUGS (3)
  1. AVASTIN [Suspect]
     Indication: LUNG ADENOCARCINOMA METASTATIC
     Route: 041
     Dates: start: 20091222, end: 20100420
  2. CARBOPLATIN [Suspect]
     Indication: LUNG ADENOCARCINOMA METASTATIC
     Dosage: NOTE: DOSAGE IS UNCERTAIN.
     Route: 041
  3. PACLITAXEL [Suspect]
     Indication: LUNG ADENOCARCINOMA METASTATIC
     Dosage: NOTE: DOSAGE IS UNCERTAIN.
     Route: 041

REACTIONS (2)
  - GASTRIC CANCER [None]
  - GASTROINTESTINAL HAEMORRHAGE [None]
